FAERS Safety Report 4455150-0 (Version None)
Quarter: 2004Q3

REPORT INFORMATION
  Report Type: 
  Country: None (occurrence: None)
  Receive Date: 20040917
  Receipt Date: 20040723
  Transmission Date: 20050211
  Serious: Yes (Death)
  Sender: FDA-Public Use
  Company Number: PHO 2004-004

PATIENT
  Age: 71 Year
  Sex: Female

DRUGS (3)
  1. PHOTOFRIN [Suspect]
     Indication: BARRETT'S OESOPHAGUS
     Dosage: 196 MG, IV
     Route: 042
     Dates: start: 20040405, end: 20040405
  2. ULTRAM [Concomitant]
  3. PREVACID [Concomitant]

REACTIONS (2)
  - DYSPNOEA [None]
  - HAEMATEMESIS [None]
